FAERS Safety Report 7948495-0 (Version None)
Quarter: 2011Q4

REPORT INFORMATION
  Report Type: 
  Country: None (occurrence: None)
  Receive Date: 20111130
  Receipt Date: 20111121
  Transmission Date: 20120403
  Serious: Yes (Hospitalization)
  Sender: FDA-Public Use
  Company Number: DE-MILLENNIUM PHARMACEUTICALS, INC.-2011-05949

PATIENT

DRUGS (1)
  1. VELCADE [Suspect]
     Indication: MULTIPLE MYELOMA
     Dosage: UNK
     Dates: start: 20110816, end: 20111031

REACTIONS (5)
  - RASH [None]
  - TESTICULAR PAIN [None]
  - TESTICULAR ATROPHY [None]
  - RASH PUSTULAR [None]
  - PYREXIA [None]
